FAERS Safety Report 10158516 (Version 2)
Quarter: 2014Q2

REPORT INFORMATION
  Report Type: Report from Study
  Country: AU (occurrence: AU)
  Receive Date: 20140507
  Receipt Date: 20140507
  Transmission Date: 20141212
  Serious: Yes (Death, Other)
  Sender: FDA-Public Use
  Company Number: PHHY2013AU108405

PATIENT
  Sex: Female
  Weight: 66 kg

DRUGS (7)
  1. AFINITOR [Suspect]
     Indication: BREAST CANCER METASTATIC
     Dosage: 10 MG, QD
     Route: 048
     Dates: start: 20130220, end: 20130915
  2. AFINITOR [Suspect]
     Indication: OFF LABEL USE
  3. OXYCODONE [Concomitant]
     Indication: BONE PAIN
     Dosage: 20 MG, BID
     Route: 048
     Dates: start: 20091113
  4. VITAMIN D [Concomitant]
     Indication: HYPOVITAMINOSIS
     Dosage: 1000 IU, QD
     Route: 048
     Dates: start: 20120823
  5. CALCIFEROL [Concomitant]
     Indication: HYPOCALCAEMIA
     Dates: start: 201208
  6. CALCIUM [Concomitant]
     Dates: start: 201208
  7. NAVELBINE [Concomitant]
     Indication: BREAST CANCER METASTATIC
     Dates: start: 201308, end: 201309

REACTIONS (5)
  - Hepatic failure [Fatal]
  - Ascites [Fatal]
  - Malignant neoplasm progression [Fatal]
  - Metastases to liver [Fatal]
  - Encephalopathy [Unknown]
